FAERS Safety Report 16457657 (Version 1)
Quarter: 2019Q2

REPORT INFORMATION
  Report Type: Spontaneous
  Country: GB (occurrence: GB)
  Receive Date: 20190620
  Receipt Date: 20190620
  Transmission Date: 20190711
  Serious: Yes (Death, Hospitalization)
  Sender: FDA-Public Use
  Company Number: GB-PFIZER INC-2019261312

PATIENT
  Age: 77 Year
  Sex: Male
  Weight: 65 kg

DRUGS (1)
  1. AMIODARONE HCL [Suspect]
     Active Substance: AMIODARONE HYDROCHLORIDE
     Indication: ATRIAL FIBRILLATION
     Dosage: 200 MG, UNK
     Route: 048
     Dates: start: 20190117, end: 20190130

REACTIONS (7)
  - Liver function test abnormal [Fatal]
  - Acute kidney injury [Fatal]
  - Cough [Fatal]
  - Respiratory failure [Fatal]
  - Dyspnoea [Fatal]
  - Acute lung injury [Fatal]
  - Chills [Fatal]

NARRATIVE: CASE EVENT DATE: 20190129
